FAERS Safety Report 25185011 (Version 1)
Quarter: 2025Q2

REPORT INFORMATION
  Report Type: Spontaneous
  Country: FR (occurrence: FR)
  Receive Date: 20250410
  Receipt Date: 20250410
  Transmission Date: 20250716
  Serious: Yes (Death, Congenital Anomaly, Other)
  Sender: ORGANON
  Company Number: None

PATIENT

DRUGS (1)
  1. NEXPLANON [Suspect]
     Active Substance: ETONOGESTREL
     Indication: Exposure during pregnancy
     Route: 064
     Dates: start: 20240523, end: 20241114

REACTIONS (2)
  - Foetal growth abnormality [Fatal]
  - Cerebral ventricle dilatation [Fatal]

NARRATIVE: CASE EVENT DATE: 20241014
